FAERS Safety Report 4789885-7 (Version None)
Quarter: 2005Q3

REPORT INFORMATION
  Report Type: 
  Country: None (occurrence: None)
  Receive Date: 20050914
  Receipt Date: 20040922
  Transmission Date: 20060218
  Serious: Yes (Death)
  Sender: FDA-Public Use
  Company Number: 163-20785-04090593

PATIENT
  Age: 71 Year
  Sex: Female

DRUGS (1)
  1. THALIDOMID (THALIDOMIDE) (200 MILLIGRAM, CAPSULES) [Suspect]
     Indication: LYMPHOMA
     Dosage: 200 MG, QHS, ORAL
     Route: 048
     Dates: start: 20040311, end: 20040804

REACTIONS (3)
  - CARDIAC ARREST [None]
  - DEATH [None]
  - DISEASE PROGRESSION [None]
